FAERS Safety Report 17049247 (Version 1)
Quarter: 2019Q4

REPORT INFORMATION
  Report Type: Spontaneous
  Country: US (occurrence: US)
  Receive Date: 20191119
  Receipt Date: 20191119
  Transmission Date: 20200122
  Serious: Yes (Life-Threatening, Hospitalization)
  Sender: FDA-Public Use
  Company Number: US-MYLANLABS-2019M1111181

PATIENT
  Age: 17 Year
  Sex: Male

DRUGS (5)
  1. DOPAMINE [Suspect]
     Active Substance: DOPAMINE HYDROCHLORIDE
     Indication: CARDIOGENIC SHOCK
     Dosage: UNK
     Route: 042
  2. FRESH FROZEN PLASMA [Concomitant]
     Active Substance: HUMAN PLASMA
     Indication: MUCOSAL HAEMORRHAGE
     Dosage: 2 INTERNATIONAL UNIT, Q6H
     Route: 065
  3. NOREPINEPHRINE. [Suspect]
     Active Substance: NOREPINEPHRINE
     Indication: CARDIOGENIC SHOCK
     Dosage: 5 MILLIGRAM/KILOGRAM, QMINUTE
     Route: 042
  4. DOPAMINE [Suspect]
     Active Substance: DOPAMINE HYDROCHLORIDE
     Dosage: TITRATED
     Route: 042
  5. VITAMIN K [Concomitant]
     Active Substance: PHYTONADIONE
     Indication: MUCOSAL HAEMORRHAGE
     Dosage: UNK
     Route: 065

REACTIONS (1)
  - Drug ineffective [Unknown]
